FAERS Safety Report 23137590 (Version 1)
Quarter: 2023Q4

REPORT INFORMATION
  Report Type: Spontaneous
  Country: US (occurrence: US)
  Receive Date: 20231102
  Receipt Date: 20231102
  Transmission Date: 20240110
  Serious: Yes (Other)
  Sender: FDA-Public Use
  Company Number: US-PURDUE PHARMA-USA-2023-0304098

PATIENT
  Sex: Male
  Weight: 39.002 kg

DRUGS (4)
  1. OXYCONTIN [Suspect]
     Active Substance: OXYCODONE HYDROCHLORIDE
     Indication: Pain management
     Dosage: 20 MILLIGRAM
     Route: 048
  2. OXYCODONE HYDROCHLORIDE [Suspect]
     Active Substance: OXYCODONE HYDROCHLORIDE
     Indication: Pain management
     Dosage: 15 MILLIGRAM, Q6H
     Route: 048
     Dates: start: 20230805
  3. OXYCODONE HYDROCHLORIDE [Suspect]
     Active Substance: OXYCODONE HYDROCHLORIDE
     Indication: Breakthrough pain
     Dosage: 10 MILLIGRAM (1-2 PER DAY)
     Route: 048
  4. FENTANYL [Suspect]
     Active Substance: FENTANYL\FENTANYL CITRATE
     Indication: Pain management
     Dosage: 50 MCG PATCH
     Route: 062

REACTIONS (21)
  - Seizure [Unknown]
  - Impaired driving ability [Unknown]
  - Metabolic disorder [Unknown]
  - Crying [Unknown]
  - Trichotillomania [Unknown]
  - Bedridden [Unknown]
  - Weight decreased [Unknown]
  - Illness [Unknown]
  - Dehydration [Unknown]
  - Palpitations [Unknown]
  - Retching [Unknown]
  - Insomnia [Unknown]
  - Product formulation issue [Unknown]
  - Drug hypersensitivity [Unknown]
  - Anxiety [Unknown]
  - Headache [Unknown]
  - Nausea [Unknown]
  - Vomiting [Unknown]
  - Drug ineffective [Unknown]
  - Sedation [Unknown]
  - Product availability issue [Unknown]
